FAERS Safety Report 8614460-3 (Version None)
Quarter: 2012Q3

REPORT INFORMATION
  Report Type: 
  Country: None (occurrence: None)
  Receive Date: 20120810
  Receipt Date: 20120801
  Transmission Date: 20120928
  Serious: Yes (Other)
  Sender: FDA-Public Use
  Company Number: ADR-2012-01325

PATIENT
  Sex: Female

DRUGS (3)
  1. BACLOFEN [Suspect]
     Indication: PAIN
  2. BACLOFEN [Suspect]
     Indication: POST LAMINECTOMY SYNDROME
  3. MORPHINE; BUPIVACAINE; SEE B5 [Concomitant]

REACTIONS (5)
  - MUSCULAR WEAKNESS [None]
  - IMPLANT SITE SWELLING [None]
  - DRUG EFFECT DECREASED [None]
  - IMPLANT SITE PAIN [None]
  - BACK PAIN [None]
